FAERS Safety Report 7465924-X (Version None)
Quarter: 2011Q2

REPORT INFORMATION
  Report Type: 
  Country: None (occurrence: None)
  Receive Date: 20110509
  Receipt Date: 20090211
  Transmission Date: 20111010
  Serious: Yes (Death)
  Sender: FDA-Public Use
  Company Number: US-GILEAD-2009-0020275

PATIENT
  Sex: Male
  Weight: 65.376 kg

DRUGS (10)
  1. REVATIO [Concomitant]
  2. SYNTHROID [Concomitant]
  3. MIDODRINE HYDROCHLORIDE [Concomitant]
  4. PREVACID [Concomitant]
  5. PRAVASTATIN [Concomitant]
  6. BUMEX [Concomitant]
  7. LETAIRIS [Suspect]
     Indication: PULMONARY ARTERIAL HYPERTENSION
     Dates: start: 20070801, end: 20081101
  8. DIGOXIN [Concomitant]
  9. PREDNISONE [Concomitant]
  10. REMODULIN [Concomitant]

REACTIONS (1)
  - ANAEMIA [None]
